FAERS Safety Report 16189905 (Version 1)
Quarter: 2019Q2

REPORT INFORMATION
  Report Type: Report from Study
  Country: US (occurrence: US)
  Receive Date: 20190412
  Receipt Date: 20190412
  Transmission Date: 20190711
  Serious: Yes (Other)
  Sender: FDA-Public Use
  Company Number: US-MYLANLABS-2019M1031623

PATIENT
  Age: 43 Year
  Sex: Female
  Weight: 58 kg

DRUGS (1)
  1. GLATIRAMER ACETATE INJECTION [Suspect]
     Active Substance: GLATIRAMER ACETATE
     Indication: RELAPSING-REMITTING MULTIPLE SCLEROSIS
     Dosage: 40 MILLIGRAM, 3XW
     Route: 065
     Dates: start: 20171001, end: 20190329

REACTIONS (6)
  - Syncope [Recovered/Resolved]
  - Diarrhoea [Recovered/Resolved]
  - Hypersensitivity [Recovering/Resolving]
  - Urticaria [Recovering/Resolving]
  - Feeling hot [Recovered/Resolved]
  - Injection site mass [Recovering/Resolving]

NARRATIVE: CASE EVENT DATE: 20190325
